FAERS Safety Report 25855689 (Version 1)
Quarter: 2025Q3

REPORT INFORMATION
  Report Type: Spontaneous
  Country: EU (occurrence: EU)
  Receive Date: 20250927
  Receipt Date: 20250927
  Transmission Date: 20251021
  Serious: Yes (Death)
  Sender: BEIGENE
  Company Number: EU-BEIGENE-BGN-2025-016663

PATIENT

DRUGS (1)
  1. TISLELIZUMAB [Suspect]
     Active Substance: TISLELIZUMAB
     Indication: Product used for unknown indication

REACTIONS (1)
  - Death [Fatal]
